FAERS Safety Report 5317003-5 (Version None)
Quarter: 2007Q2

REPORT INFORMATION
  Report Type: 
  Country: None (occurrence: None)
  Receive Date: 20070504
  Receipt Date: 20070424
  Transmission Date: 20071010
  Serious: Yes (Hospitalization)
  Sender: FDA-Public Use
  Company Number: ES-ROCHE-485194

PATIENT
  Age: 60 Year
  Sex: Female
  Weight: 50 kg

DRUGS (3)
  1. CELLCEPT [Suspect]
     Dosage: DOSAGE REGIMEN  REPORTED AS 500 MG/12 HOURS
     Route: 048
     Dates: start: 20061006, end: 20070225
  2. PROGRAF [Concomitant]
     Indication: IMMUNOSUPPRESSANT DRUG THERAPY
     Route: 048
     Dates: start: 20060220, end: 20070225
  3. AUGMENTIN '125' [Concomitant]
     Dosage: DRUG NAME REPORTED AS AUGMENTINE. DOSE: 500 MG/8 HOURS
     Route: 048
     Dates: start: 20070202, end: 20070222

REACTIONS (2)
  - HEPATOTOXICITY [None]
  - JAUNDICE [None]
